FAERS Safety Report 5858830-5 (Version None)
Quarter: 2008Q3

REPORT INFORMATION
  Report Type: 
  Country: None (occurrence: None)
  Receive Date: 20080818
  Receipt Date: 20080611
  Transmission Date: 20090109
  Serious: No
  Sender: FDA-Public Use
  Company Number: WAES 0707USA02995

PATIENT

DRUGS (2)
  1. JANUVIA [Suspect]
     Indication: TYPE 2 DIABETES MELLITUS
     Dosage: 100 MG/DAILY/PO ; DAILY/PO
     Route: 048
  2. INSULIN [Concomitant]

REACTIONS (2)
  - HYPOGLYCAEMIA [None]
  - WRONG TECHNIQUE IN DRUG USAGE PROCESS [None]
